FAERS Safety Report 11259556 (Version 3)
Quarter: 2015Q3

REPORT INFORMATION
  Report Type: Spontaneous
  Country: ES (occurrence: ES)
  Receive Date: 20150710
  Receipt Date: 20150904
  Transmission Date: 20151125
  Serious: Yes (Life-Threatening, Hospitalization, Other)
  Sender: FDA-Public Use
  Company Number: ES-JNJFOC-20150622194

PATIENT
  Sex: Male

DRUGS (2)
  1. OLYSIO [Suspect]
     Active Substance: SIMEPREVIR
     Indication: HEPATITIS C
     Route: 048
  2. SOFOSBUVIR [Suspect]
     Active Substance: SOFOSBUVIR
     Indication: HEPATITIS C
     Route: 065

REACTIONS (9)
  - Anaemia [Unknown]
  - Neutropenia [Unknown]
  - Ascites [Unknown]
  - Intentional product misuse [Unknown]
  - Encephalopathy [Unknown]
  - Prothrombin level decreased [Unknown]
  - Thrombocytopenia [Unknown]
  - Blood bilirubin increased [Not Recovered/Not Resolved]
  - Pancytopenia [Unknown]
